FAERS Safety Report 9834495 (Version 3)
Quarter: 2014Q1

REPORT INFORMATION
  Report Type: Spontaneous
  Country: JP (occurrence: JP)
  Receive Date: 20140122
  Receipt Date: 20140211
  Transmission Date: 20141002
  Serious: Yes (Other)
  Sender: FDA-Public Use
  Company Number: JP-SA-2014SA007560

PATIENT
  Age: 64 Year
  Sex: Female

DRUGS (6)
  1. IRBETAN [Suspect]
     Indication: HYPERTENSION
     Route: 048
     Dates: start: 20131224, end: 20131225
  2. GLACTIV [Concomitant]
     Indication: TYPE 1 DIABETES MELLITUS
     Route: 048
     Dates: start: 20130227
  3. KALIMATE [Concomitant]
     Indication: HYPERKALAEMIA
     Route: 048
     Dates: start: 20130327
  4. GASPORT [Concomitant]
     Indication: GASTRIC ULCER
     Route: 048
     Dates: start: 20130227
  5. LANTUS [Concomitant]
     Indication: TYPE 1 DIABETES MELLITUS
     Route: 058
     Dates: start: 20130227
  6. AIMIX [Concomitant]
     Indication: HYPERTENSION
     Route: 048
     Dates: start: 20130313

REACTIONS (1)
  - Hypoglycaemia [Recovered/Resolved]
